FAERS Safety Report 14853368 (Version 11)
Quarter: 2019Q2

REPORT INFORMATION
  Report Type: Spontaneous
  Country: US (occurrence: US)
  Receive Date: 20180507
  Receipt Date: 20190517
  Transmission Date: 20190711
  Serious: Yes (Hospitalization, Other)
  Sender: FDA-Public Use
  Company Number: US-BRISTOL-MYERS SQUIBB COMPANY-BMS-2018-038558

PATIENT
  Age: 68 Year
  Sex: Female

DRUGS (2)
  1. ORENCIA [Suspect]
     Active Substance: ABATACEPT
     Indication: RHEUMATOID ARTHRITIS
     Dosage: 125 MG, QWK
     Route: 058
     Dates: start: 201606
  2. ORENCIA [Suspect]
     Active Substance: ABATACEPT
     Indication: PRODUCT USED FOR UNKNOWN INDICATION
     Dosage: 125 MG, QWK
     Route: 058
     Dates: start: 201805

REACTIONS (10)
  - Fall [Unknown]
  - Chest pain [Unknown]
  - Localised infection [Unknown]
  - Breast disorder [Unknown]
  - Seizure [Unknown]
  - Head injury [Unknown]
  - Pain [Unknown]
  - Headache [Unknown]
  - Urinary tract infection [Unknown]
  - Condition aggravated [Unknown]

NARRATIVE: CASE EVENT DATE: 20180512
